FAERS Safety Report 24279861 (Version 1)
Quarter: 2024Q3

REPORT INFORMATION
  Report Type: Spontaneous
  Country: US (occurrence: US)
  Receive Date: 20240904
  Receipt Date: 20240904
  Transmission Date: 20241016
  Serious: No
  Sender: CHATTEM
  Company Number: US-OPELLA-2024OHG030278

PATIENT
  Sex: Male

DRUGS (1)
  1. SELSUN BLUE MOISTURIZING [Suspect]
     Active Substance: SELENIUM SULFIDE
     Indication: Product used for unknown indication

REACTIONS (2)
  - Drug ineffective [Unknown]
  - No adverse event [Unknown]
